FAERS Safety Report 9550478 (Version 1)
Quarter: 2013Q3

REPORT INFORMATION
  Report Type: Spontaneous
  Country: US (occurrence: US)
  Receive Date: 20130924
  Receipt Date: 20130924
  Transmission Date: 20140515
  Serious: No
  Sender: FDA-Public Use
  Company Number: US-SANOFI-AVENTIS-2013SA081118

PATIENT
  Age: 52 Year
  Sex: Female

DRUGS (9)
  1. AUBAGIO [Suspect]
     Indication: MULTIPLE SCLEROSIS
     Route: 048
     Dates: start: 20130502
  2. LASIX [Concomitant]
  3. AMITRIPTYLINE [Concomitant]
  4. ALPRAZOLAM [Concomitant]
  5. HYDROCODONE BITARTRATE [Concomitant]
  6. OMEPRAZOLE [Concomitant]
  7. DICYCLOMINE HYDROCHLORIDE [Concomitant]
  8. GABAPENTIN [Concomitant]
  9. PROCHLORPERAZINE MALEATE [Concomitant]

REACTIONS (4)
  - Local swelling [Unknown]
  - Pain [Unknown]
  - Gait disturbance [Unknown]
  - Nausea [Unknown]
